APPROVED DRUG PRODUCT: LOREEV XR
Active Ingredient: LORAZEPAM
Strength: 3MG
Dosage Form/Route: CAPSULE, EXTENDED RELEASE;ORAL
Application: N214826 | Product #003
Applicant: ALMATICA PHARMA LLC
Approved: Aug 27, 2021 | RLD: Yes | RS: Yes | Type: RX

PATENTS:
Patent 8999393 | Expires: Jan 8, 2034